FAERS Safety Report 14336429 (Version 1)
Quarter: 2017Q4

REPORT INFORMATION
  Report Type: Spontaneous
  Country: US (occurrence: US)
  Receive Date: 20171229
  Receipt Date: 20171229
  Transmission Date: 20180321
  Serious: Yes (Other)
  Sender: FDA-Public Use
  Company Number: US-SUN PHARMACEUTICAL INDUSTRIES LTD-2017US-156992

PATIENT
  Age: 53 Year
  Sex: Female

DRUGS (1)
  1. LIOTHYRONINE [Suspect]
     Active Substance: LIOTHYRONINE
     Indication: THYROID HORMONE REPLACEMENT THERAPY
     Route: 048

REACTIONS (4)
  - Thyrotoxic crisis [Recovering/Resolving]
  - Cardiovascular disorder [Unknown]
  - Tri-iodothyronine free increased [Recovering/Resolving]
  - Tri-iodothyronine increased [Recovering/Resolving]
